FAERS Safety Report 7972333 (Version 5)
Quarter: 2012Q4

REPORT INFORMATION
  Report Type: Report from Study
  Country: FR (occurrence: FR)
  Receive Date: 20110602
  Receipt Date: 20121227
  Transmission Date: 20130627
  Serious: Yes (Hospitalization, Other)
  Sender: FDA-Public Use
  Company Number: PHHO2011FR09127

PATIENT
  Age: 8 Year
  Sex: Male
  Weight: 32.9 kg

DRUGS (2)
  1. ACZ885 [Suspect]
     Indication: JUVENILE ARTHRITIS
     Dosage: 4 mg/kg, every 4 weeks
     Route: 058
     Dates: start: 20090915
  2. ACZ885 [Suspect]
     Indication: JUVENILE ARTHRITIS
     Dosage: UNK

REACTIONS (2)
  - Rhinitis [Not Recovered/Not Resolved]
  - Lymphadenitis [Recovered/Resolved]
